FAERS Safety Report 9752178 (Version 1)
Quarter: 2013Q4

REPORT INFORMATION
  Report Type: Spontaneous
  Country: US (occurrence: None)
  Receive Date: 20131211
  Receipt Date: 20131211
  Transmission Date: 20140711
  Serious: Yes (Other)
  Sender: FDA-Public Use
  Company Number: None

PATIENT
  Sex: Female
  Weight: 71.31 kg

DRUGS (1)
  1. KEPPRA, 1000 MG [Suspect]
     Indication: EPILEPSY
     Route: 048
     Dates: start: 200811, end: 200905

REACTIONS (1)
  - Convulsion [None]
